FAERS Safety Report 8205206-1 (Version None)
Quarter: 2012Q1

REPORT INFORMATION
  Report Type: 
  Country: None (occurrence: None)
  Receive Date: 20120313
  Receipt Date: 20120229
  Transmission Date: 20120608
  Serious: Yes (Hospitalization)
  Sender: FDA-Public Use
  Company Number: GB-ROCHE-626658

PATIENT
  Sex: Male
  Weight: 79.7 kg

DRUGS (9)
  1. METOCLOPRAMIDE [Concomitant]
     Dosage: DOSE FREQUENCY: QDSX3 DAYS THEN AS NEEDED
     Route: 048
     Dates: start: 20090325, end: 20090404
  2. NEULASTA [Suspect]
     Indication: NON-HODGKIN'S LYMPHOMA
     Dosage: DAY 9
     Route: 058
     Dates: start: 20090325, end: 20090402
  3. COTRIM [Concomitant]
     Indication: ANTIFUNGAL PROPHYLAXIS
     Dosage: THRICE WEEKLY
     Route: 048
  4. TRAMADOL HCL [Concomitant]
     Indication: ANALGESIC THERAPY
     Dosage: AS NEEDED
     Route: 048
  5. MABTHERA [Suspect]
     Indication: NON-HODGKIN'S LYMPHOMA
     Dosage: DAY 1
     Route: 042
     Dates: start: 20090325, end: 20090325
  6. PREDNISONE [Suspect]
     Indication: NON-HODGKIN'S LYMPHOMA
     Dosage: DAY 1 TO DAY 5
     Route: 048
     Dates: start: 20090325, end: 20090329
  7. VINCRISTINE [Suspect]
     Indication: NON-HODGKIN'S LYMPHOMA
     Dosage: DAY 1
     Route: 042
     Dates: start: 20090325, end: 20090325
  8. CYCLOPHOSPHAMIDE [Suspect]
     Indication: NON-HODGKIN'S LYMPHOMA
     Route: 042
     Dates: start: 20090325, end: 20090325
  9. GEMCITABINE HYDROCHLORIDE [Suspect]
     Indication: NON-HODGKIN'S LYMPHOMA
     Dosage: DAY 1  DAY 8
     Route: 042
     Dates: start: 20090325, end: 20090401

REACTIONS (6)
  - PYREXIA [None]
  - CHEST PAIN [None]
  - PLATELET COUNT DECREASED [None]
  - TROPONIN INCREASED [None]
  - HAEMOGLOBIN DECREASED [None]
  - INFECTION [None]
